FAERS Safety Report 8559044-0 (Version None)
Quarter: 2012Q3

REPORT INFORMATION
  Report Type: 
  Country: None (occurrence: None)
  Receive Date: 20120802
  Receipt Date: 20120723
  Transmission Date: 20120928
  Serious: No
  Sender: FDA-Public Use
  Company Number: US-BIOGENIDEC-2012BI027273

PATIENT
  Age: 40 Year
  Sex: Female

DRUGS (3)
  1. TYSABRI [Suspect]
     Indication: MULTIPLE SCLEROSIS
     Route: 042
     Dates: start: 20050131, end: 20050228
  2. AVONEX [Concomitant]
     Indication: MULTIPLE SCLEROSIS
     Route: 030
     Dates: start: 20050301
  3. TYSABRI [Suspect]
     Route: 042
     Dates: start: 20080916

REACTIONS (2)
  - PARAESTHESIA [None]
  - HYPOAESTHESIA [None]
